FAERS Safety Report 8290236-4 (Version None)
Quarter: 2012Q2

REPORT INFORMATION
  Report Type: 
  Country: None (occurrence: None)
  Receive Date: 20120417
  Receipt Date: 20120405
  Transmission Date: 20120825
  Serious: Yes (Hospitalization)
  Sender: FDA-Public Use
  Company Number: IE-JNJFOC-20120404609

PATIENT
  Age: 13 Year
  Sex: Male
  Weight: 49 kg

DRUGS (2)
  1. RISPERDAL [Suspect]
     Indication: PRODUCT USED FOR UNKNOWN INDICATION
     Route: 048
     Dates: start: 20120201
  2. RISPERDAL [Suspect]
     Route: 048

REACTIONS (5)
  - EYE MOVEMENT DISORDER [None]
  - PALLOR [None]
  - PROTRUSION TONGUE [None]
  - LETHARGY [None]
  - OVERDOSE [None]
